FAERS Safety Report 11010769 (Version 3)
Quarter: 2015Q2

REPORT INFORMATION
  Report Type: Spontaneous
  Country: US (occurrence: US)
  Receive Date: 20150410
  Receipt Date: 20150515
  Transmission Date: 20150821
  Serious: No
  Sender: FDA-Public Use
  Company Number: US-PFIZER INC-2015121946

PATIENT
  Age: 37 Year
  Sex: Male

DRUGS (3)
  1. ADRIAMYCIN [Suspect]
     Active Substance: DOXORUBICIN HYDROCHLORIDE
     Indication: THYMIC CANCER METASTATIC
     Dosage: 5 CYCLES
     Dates: start: 200711
  2. CYTOXAN [Suspect]
     Active Substance: CYCLOPHOSPHAMIDE
     Indication: THYMIC CANCER METASTATIC
     Dosage: UNK, 5 CYCLE, 1 IN 3 WEEKS, 2GR VIAL
     Dates: start: 200711, end: 20091230
  3. CISPLATINUM [Suspect]
     Active Substance: CISPLATIN
     Indication: THYMIC CANCER METASTATIC
     Dosage: 5 CYCLES
     Dates: start: 200711, end: 20140903

REACTIONS (2)
  - Thymic cancer metastatic [Unknown]
  - Disease progression [Unknown]
